FAERS Safety Report 6198267-5 (Version None)
Quarter: 2009Q2

REPORT INFORMATION
  Report Type: 
  Country: None (occurrence: None)
  Receive Date: 20090519
  Receipt Date: 20090511
  Transmission Date: 20091009
  Serious: Yes (Other)
  Sender: FDA-Public Use
  Company Number: IPS_01630_2009

PATIENT
  Age: 33 Year
  Sex: Male

DRUGS (2)
  1. APOKYN [Suspect]
     Indication: PARKINSON'S DISEASE
     Dosage: (0.3 ML PRN, [ABOUT ONCE PER DAY] SUBCUTANEOUS)
     Route: 058
     Dates: start: 20081201
  2. ENDOMYCIN [Suspect]
     Indication: PNEUMONIA
     Dosage: (DF)
     Dates: start: 20090405, end: 20090101

REACTIONS (9)
  - ANTIPHOSPHOLIPID SYNDROME [None]
  - DRUG INTERACTION [None]
  - DYSGEUSIA [None]
  - MUSCULOSKELETAL PAIN [None]
  - NAUSEA [None]
  - PAIN IN EXTREMITY [None]
  - PLEURAL EFFUSION [None]
  - PULMONARY EMBOLISM [None]
  - VOMITING [None]
